FAERS Safety Report 25937110 (Version 1)
Quarter: 2025Q4

REPORT INFORMATION
  Report Type: Spontaneous
  Country: EU (occurrence: EU)
  Receive Date: 20251017
  Receipt Date: 20251017
  Transmission Date: 20260119
  Serious: Yes (Hospitalization)
  Sender: BOEHRINGER INGELHEIM
  Company Number: EU-BoehringerIngelheim-2025-BI-101732

PATIENT
  Sex: Female
  Weight: 93 kg

DRUGS (1)
  1. JARDIANCE [Suspect]
     Active Substance: EMPAGLIFLOZIN
     Indication: Type 2 diabetes mellitus
     Dates: start: 20230825

REACTIONS (2)
  - Proteinuria [Unknown]
  - Klebsiella urinary tract infection [Unknown]

NARRATIVE: CASE EVENT DATE: 20240731
